FAERS Safety Report 14796918 (Version 1)
Quarter: 2018Q2

REPORT INFORMATION
  Report Type: Report from Study
  Country: US (occurrence: US)
  Receive Date: 20180423
  Receipt Date: 20180423
  Transmission Date: 20180711
  Serious: No
  Sender: FDA-Public Use
  Company Number: US-AMGEN-USASL2018051347

PATIENT
  Sex: Female

DRUGS (1)
  1. REPATHA [Suspect]
     Active Substance: EVOLOCUMAB
     Indication: HYPERCHOLESTEROLAEMIA
     Dosage: 140 MG, Q2WK
     Route: 065

REACTIONS (6)
  - Back pain [Recovered/Resolved]
  - Chills [Recovered/Resolved]
  - Accidental exposure to product [Unknown]
  - Injection site haemorrhage [Unknown]
  - Waist circumference increased [Unknown]
  - Injection site pain [Unknown]
